FAERS Safety Report 8815067 (Version 1)
Quarter: 2012Q4

REPORT INFORMATION
  Report Type: 
  Country: US (occurrence: US)
  Receive Date: 20120928
  Receipt Date: 20120928
  Transmission Date: 20130627
  Serious: Yes (Death, Other)
  Sender: FDA-Public Use
  Company Number: US-ROCHE-1127612

PATIENT
  Sex: Female

DRUGS (7)
  1. AVASTIN [Suspect]
     Indication: BREAST CANCER
     Route: 065
  2. XELODA [Suspect]
     Indication: BREAST CANCER
     Route: 065
     Dates: end: 201003
  3. XELODA [Suspect]
     Route: 065
     Dates: start: 20100625
  4. HERCEPTIN [Suspect]
     Indication: BREAST CANCER
     Route: 065
     Dates: end: 201003
  5. HERCEPTIN [Suspect]
     Route: 065
  6. GEMCITABINE [Concomitant]
  7. TYKERB [Concomitant]
     Route: 065
     Dates: start: 20100625

REACTIONS (5)
  - Death [Fatal]
  - Metastases to central nervous system [Unknown]
  - Exfoliative rash [Unknown]
  - Abdominal pain upper [Unknown]
  - Drug intolerance [Unknown]
